FAERS Safety Report 5456075-4 (Version None)
Quarter: 2007Q3

REPORT INFORMATION
  Report Type: 
  Country: None (occurrence: None)
  Receive Date: 20070918
  Receipt Date: 20070907
  Transmission Date: 20080115
  Serious: Yes (Hospitalization)
  Sender: FDA-Public Use
  Company Number: FR-ROCHE-399940

PATIENT
  Age: 15 Year
  Sex: Female
  Weight: 42 kg

DRUGS (1)
  1. ISOTRETINOIN [Suspect]
     Indication: ACNE
     Route: 048
     Dates: start: 20040902, end: 20050317

REACTIONS (6)
  - HEADACHE [None]
  - HYPOTENSION [None]
  - TACHYCARDIA [None]
  - VISION BLURRED [None]
  - VOMITING [None]
  - WEIGHT DECREASED [None]
